FAERS Safety Report 8034634-2 (Version None)
Quarter: 2012Q1

REPORT INFORMATION
  Report Type: 
  Country: None (occurrence: None)
  Receive Date: 20120110
  Receipt Date: 20120106
  Transmission Date: 20120608
  Serious: Yes (Hospitalization)
  Sender: FDA-Public Use
  Company Number: CA-MERCK-1201USA00750

PATIENT
  Age: 44 Year
  Sex: Male

DRUGS (3)
  1. ZETIA [Suspect]
     Indication: BLOOD CHOLESTEROL INCREASED
     Route: 048
     Dates: start: 20110801
  2. PANTOPRAZOLE [Concomitant]
     Route: 065
  3. LIPITOR [Suspect]
     Route: 048

REACTIONS (2)
  - HEADACHE [None]
  - SKULL X-RAY ABNORMAL [None]
